FAERS Safety Report 5460043-6 (Version None)
Quarter: 2007Q3

REPORT INFORMATION
  Report Type: 
  Country: None (occurrence: None)
  Receive Date: 20070919
  Receipt Date: 20070507
  Transmission Date: 20080115
  Serious: Yes (Other)
  Sender: FDA-Public Use
  Company Number: US-ASTRAZENECA-2007UW11048

PATIENT
  Age: 40 Year
  Sex: Female
  Weight: 72.3 kg

DRUGS (3)
  1. SEROQUEL [Suspect]
     Indication: BIPOLAR DISORDER
     Dosage: 100 MG-200 MG
     Route: 048
     Dates: start: 20020101
  2. PAXIL [Concomitant]
  3. TRAZODONE HCL [Concomitant]

REACTIONS (1)
  - TARDIVE DYSKINESIA [None]
